FAERS Safety Report 23421942 (Version 1)
Quarter: 2024Q1

REPORT INFORMATION
  Report Type: Spontaneous
  Country: US (occurrence: None)
  Receive Date: 20240118
  Receipt Date: 20240118
  Transmission Date: 20240410
  Serious: No
  Sender: FDA-Public Use
  Company Number: None

PATIENT
  Age: 83 Year
  Sex: Female

DRUGS (16)
  1. PROLIA [Suspect]
     Active Substance: DENOSUMAB
     Indication: Osteoporosis
     Dosage: OTHER FREQUENCY : Q 6 MONTHS;?
     Route: 058
  2. ELIQUIS [Concomitant]
     Active Substance: APIXABAN
  3. LININOPRIL [Concomitant]
  4. CALCIUM [Concomitant]
     Active Substance: CALCIUM
  5. DORZOLAMIDE OPHTH SOLN [Concomitant]
  6. DULOXETINE [Concomitant]
     Active Substance: DULOXETINE
  7. FISH OIL [Concomitant]
     Active Substance: FISH OIL
  8. GABAPENTIN [Concomitant]
     Active Substance: GABAPENTIN
  9. ACETAMINOPHEN\HYDROCODONE [Concomitant]
     Active Substance: ACETAMINOPHEN\HYDROCODONE
  10. ATANOPROST OPHTH SOLN [Concomitant]
  11. LEVOTHYROXINE [Concomitant]
     Active Substance: LEVOTHYROXINE\LEVOTHYROXINE SODIUM
  12. MULTIVITAMIN [Concomitant]
  13. RHOPRESSA OPTH SOL [Concomitant]
  14. SIMVASTATIN [Concomitant]
     Active Substance: SIMVASTATIN
  15. VITAMIN B12 [Concomitant]
     Active Substance: CYANOCOBALAMIN
  16. VITAMIN D3 [Concomitant]
     Active Substance: CHOLECALCIFEROL

REACTIONS (2)
  - Fall [None]
  - Rib fracture [None]

NARRATIVE: CASE EVENT DATE: 20231118
